FAERS Safety Report 12230956 (Version 2)
Quarter: 2016Q2

REPORT INFORMATION
  Report Type: Spontaneous
  Country: IT (occurrence: IT)
  Receive Date: 20160401
  Receipt Date: 20160505
  Transmission Date: 20160815
  Serious: Yes (Congenital Anomaly, Other)
  Sender: FDA-Public Use
  Company Number: PHHY2016IT040615

PATIENT
  Age: 0 Day
  Sex: Female

DRUGS (2)
  1. ALPRAZOLAM. [Suspect]
     Active Substance: ALPRAZOLAM
     Indication: AGORAPHOBIA
     Route: 065
  2. SERTRALINE [Suspect]
     Active Substance: SERTRALINE HYDROCHLORIDE
     Dosage: 50 MG, QD
     Route: 065

REACTIONS (3)
  - Talipes [Recovered/Resolved]
  - Foetal exposure during pregnancy [Recovered/Resolved]
  - Laryngomalacia [Recovered/Resolved]

NARRATIVE: CASE EVENT DATE: 20151204
